FAERS Safety Report 17873818 (Version 1)
Quarter: 2020Q2

REPORT INFORMATION
  Report Type: Spontaneous
  Country: US (occurrence: US)
  Receive Date: 20200609
  Receipt Date: 20200609
  Transmission Date: 20200714
  Serious: No
  Sender: FDA-Public Use
  Company Number: US-BAUSCH-BL-2020-016357

PATIENT
  Age: 50 Year
  Sex: Female

DRUGS (2)
  1. CVS EYE ALLERGY RELIEF [Suspect]
     Active Substance: NAPHAZOLINE HYDROCHLORIDE\PHENIRAMINE MALEATE
     Indication: DRY EYE
     Dosage: AS NEEDED IN BOTH EYES
     Route: 047
     Dates: start: 201912
  2. CVS EYE ALLERGY RELIEF [Suspect]
     Active Substance: NAPHAZOLINE HYDROCHLORIDE\PHENIRAMINE MALEATE
     Indication: EYE ALLERGY

REACTIONS (2)
  - Eye irritation [Not Recovered/Not Resolved]
  - Paraesthesia [Not Recovered/Not Resolved]
